FAERS Safety Report 10889645 (Version 4)
Quarter: 2015Q2

REPORT INFORMATION
  Report Type: Spontaneous
  Country: US (occurrence: US)
  Receive Date: 20150305
  Receipt Date: 20150416
  Transmission Date: 20150821
  Serious: Yes (Hospitalization, Other)
  Sender: FDA-Public Use
  Company Number: US-GLAXOSMITHKLINE-US2015029242

PATIENT
  Age: 52 Year
  Sex: Female

DRUGS (11)
  1. NEUPRO [Concomitant]
     Active Substance: ROTIGOTINE
  2. AMLODIPINE [Concomitant]
     Active Substance: AMLODIPINE BESYLATE
  3. FLUDROCORTISONE [Concomitant]
     Active Substance: FLUDROCORTISONE
  4. PREDNISONE. [Concomitant]
     Active Substance: PREDNISONE
  5. BENLYSTA [Suspect]
     Active Substance: BELIMUMAB
     Indication: SYSTEMIC LUPUS ERYTHEMATOSUS
     Dosage: UNKNOWN DOSE, MONTHLY
     Route: 042
     Dates: start: 2011, end: 20141104
  6. ASPIRIN (BABY) [Concomitant]
  7. GABAPENTIN. [Concomitant]
     Active Substance: GABAPENTIN
  8. ARAVA [Concomitant]
     Active Substance: LEFLUNOMIDE
  9. CYMBALTA [Concomitant]
     Active Substance: DULOXETINE HYDROCHLORIDE
  10. PLAQUENIL [Concomitant]
     Active Substance: HYDROXYCHLOROQUINE SULFATE
  11. TRIAMTERENE. [Concomitant]
     Active Substance: TRIAMTERENE

REACTIONS (13)
  - Infusion related reaction [Not Recovered/Not Resolved]
  - Ankle operation [Unknown]
  - Loss of consciousness [Not Recovered/Not Resolved]
  - Anxiety [Unknown]
  - Urinary tract infection [Unknown]
  - Drug dose omission [Unknown]
  - Hospitalisation [Unknown]
  - Hyperventilation [Not Recovered/Not Resolved]
  - Hypotension [Not Recovered/Not Resolved]
  - Heart rate increased [Not Recovered/Not Resolved]
  - Hypoaesthesia [Unknown]
  - Neck surgery [Unknown]
  - Surgery [Unknown]

NARRATIVE: CASE EVENT DATE: 201212
